FAERS Safety Report 7116985-9 (Version None)
Quarter: 2010Q4

REPORT INFORMATION
  Report Type: 
  Country: None (occurrence: None)
  Receive Date: 20101115
  Receipt Date: 20101103
  Transmission Date: 20110411
  Serious: Yes (Other)
  Sender: FDA-Public Use
  Company Number: DSA_44212_2010

PATIENT
  Age: 69 Year
  Sex: Male

DRUGS (5)
  1. ENALAPRIL MALEATE [Suspect]
     Dosage: DF ORAL
     Route: 048
  2. METFORMIN [Concomitant]
  3. GARCINIA GUMMI-GUTTA EXTRACT [Concomitant]
  4. SERTRALINE [Concomitant]
  5. HYDROCHLOROTHIAZIDE [Concomitant]

REACTIONS (2)
  - PSEUDOLYMPHOMA [None]
  - RASH PAPULAR [None]
